FAERS Safety Report 5192023-2 (Version None)
Quarter: 2006Q4

REPORT INFORMATION
  Report Type: 
  Country: None (occurrence: None)
  Receive Date: 20061220
  Receipt Date: 20061204
  Transmission Date: 20070319
  Serious: Yes (Death, Hospitalization)
  Sender: FDA-Public Use
  Company Number: 233612

PATIENT
  Age: 30 Year
  Sex: Male
  Weight: 47.4 kg

DRUGS (7)
  1. AVASTIN [Suspect]
     Indication: HEPATIC NEOPLASM MALIGNANT
     Dosage: 7.5 MG/KG, Q3W, INTRAVENOUS
     Route: 042
     Dates: start: 20060822, end: 20060911
  2. CAPECITABINE (CAPECITABINE) [Suspect]
     Indication: HEPATIC NEOPLASM MALIGNANT
     Dosage: 1600 MG/M2, QD, ORAL
     Route: 048
     Dates: start: 20060822, end: 20060911
  3. METOCLOPRAMIDE (METOCLOPRAMIDE HYDROCHLORIDE) [Concomitant]
  4. PROHEPARUM (CHOLINE BITARTRATE, CYANOCOBALAMIN, CYSTEINE HYDROCHLORIDE [Concomitant]
  5. SPIRONOLACTONE [Concomitant]
  6. ALPRAZOLAM [Concomitant]
  7. SIMETHICONE [Concomitant]

REACTIONS (5)
  - BLOOD CREATININE INCREASED [None]
  - BLOOD UREA INCREASED [None]
  - HEPATIC FAILURE [None]
  - HEPATITIS B [None]
  - HEPATITIS FULMINANT [None]
